FAERS Safety Report 23993722 (Version 1)
Quarter: 2024Q2

REPORT INFORMATION
  Report Type: Spontaneous
  Country: US (occurrence: US)
  Receive Date: 20240620
  Receipt Date: 20240620
  Transmission Date: 20240716
  Serious: Yes (Death, Hospitalization)
  Sender: FDA-Public Use
  Company Number: US-MYLANLABS-2024M1055365

PATIENT
  Age: 5 Day
  Sex: Male

DRUGS (1)
  1. ADENOSINE [Suspect]
     Active Substance: ADENOSINE
     Indication: Drug therapy
     Dosage: 0.3 MILLIGRAM/KILOGRAM
     Route: 042

REACTIONS (3)
  - Cardiac arrest neonatal [Fatal]
  - Multiple organ dysfunction syndrome [Fatal]
  - Off label use [Unknown]
